FAERS Safety Report 6754157-8 (Version None)
Quarter: 2010Q2

REPORT INFORMATION
  Report Type: 
  Country: None (occurrence: None)
  Receive Date: 20100603
  Receipt Date: 20100520
  Transmission Date: 20101027
  Serious: Yes (Other)
  Sender: FDA-Public Use
  Company Number: PHHY2010US35564

PATIENT
  Sex: Female

DRUGS (3)
  1. EXJADE [Suspect]
     Indication: THALASSAEMIA
     Dosage: 1000 MG, QD
     Route: 048
  2. AVELOX [Concomitant]
     Dosage: UNK
  3. AZITHROMYCIN [Concomitant]
     Dosage: UNK

REACTIONS (4)
  - EAR INFECTION [None]
  - EFFUSION [None]
  - HYPOACUSIS [None]
  - TYMPANIC MEMBRANE DISORDER [None]
